FAERS Safety Report 12105072 (Version 3)
Quarter: 2016Q1

REPORT INFORMATION
  Report Type: Spontaneous
  Country: US (occurrence: US)
  Receive Date: 20160223
  Receipt Date: 20160328
  Transmission Date: 20160526
  Serious: No
  Sender: FDA-Public Use
  Company Number: US-PFIZER INC-2016106216

PATIENT
  Sex: Female

DRUGS (1)
  1. HYDROXYZINE PAMOATE. [Suspect]
     Active Substance: HYDROXYZINE PAMOATE
     Dosage: UNK
     Dates: start: 2000, end: 2004

REACTIONS (3)
  - Headache [Unknown]
  - Condition aggravated [Unknown]
  - Drug hypersensitivity [Unknown]
